FAERS Safety Report 8346474-5 (Version None)
Quarter: 2012Q2

REPORT INFORMATION
  Report Type: 
  Country: None (occurrence: None)
  Receive Date: 20120507
  Receipt Date: 20120507
  Transmission Date: 20120825
  Serious: Yes (Hospitalization)
  Sender: FDA-Public Use
  Company Number: None

PATIENT
  Age: 59 Year
  Sex: Female
  Weight: 102 kg

DRUGS (9)
  1. DOCUSATE [Concomitant]
  2. METFORMIN HCL [Concomitant]
  3. HYDROCHLOROTHIAZIDE [Concomitant]
  4. COREG [Concomitant]
  5. ATORVASTATIN CALCIUM [Concomitant]
  6. GEMFIBROZIL [Concomitant]
  7. CEFAZOLIN [Suspect]
     Dosage: 1 GRAM ON CALL TO OR
  8. SYNTHROID [Concomitant]
  9. RAMIPRIL [Concomitant]

REACTIONS (1)
  - ANAPHYLACTIC REACTION [None]
